FAERS Safety Report 4711753-7 (Version None)
Quarter: 2005Q3

REPORT INFORMATION
  Report Type: 
  Country: None (occurrence: None)
  Receive Date: 20050708
  Receipt Date: 20050708
  Transmission Date: 20060218
  Serious: Yes (Other)
  Sender: FDA-Public Use
  Company Number: None

PATIENT
  Age: 65 Year
  Sex: Male
  Weight: 82.1 kg

DRUGS (1)
  1. GATIFLOXACIN [Suspect]
     Indication: PREOPERATIVE CARE
     Dosage: 400 MG , 400 MG QD , INTRAVEN
     Route: 042
     Dates: start: 20050404, end: 20050404

REACTIONS (1)
  - RASH [None]
